FAERS Safety Report 8171765-0 (Version None)
Quarter: 2012Q1

REPORT INFORMATION
  Report Type: 
  Country: None (occurrence: None)
  Receive Date: 20120228
  Receipt Date: 20120222
  Transmission Date: 20120608
  Serious: Yes (Death, Life-Threatening, Hospitalization, Disabling, Other)
  Sender: FDA-Public Use
  Company Number: US-GLAXOSMITHKLINE-A0942516A

PATIENT
  Age: 74 Year
  Sex: Male
  Weight: 68.2 kg

DRUGS (8)
  1. VOTRIENT [Suspect]
     Indication: RENAL CANCER
     Dosage: 200MG FOUR TIMES PER DAY
     Route: 048
     Dates: start: 20091201, end: 20110618
  2. UNKNOWN [Concomitant]
  3. FLOMAX [Concomitant]
  4. AMLODIPINE [Concomitant]
  5. LOMOTIL [Concomitant]
  6. SYMBICORT [Concomitant]
  7. GABAPENTIN [Concomitant]
  8. HYDROCODONE [Concomitant]

REACTIONS (2)
  - INAPPROPRIATE SCHEDULE OF DRUG ADMINISTRATION [None]
  - NEOPLASM MALIGNANT [None]
